FAERS Safety Report 20133472 (Version 1)
Quarter: 2021Q4

REPORT INFORMATION
  Report Type: Spontaneous
  Country: US (occurrence: US)
  Receive Date: 20211201
  Receipt Date: 20211201
  Transmission Date: 20220304
  Serious: No
  Sender: FDA-Public Use
  Company Number: US-CHIESI-2021CHF02494

PATIENT
  Age: 14 Year
  Sex: Male
  Weight: 37.73 kg

DRUGS (4)
  1. BETHKIS [Suspect]
     Active Substance: TOBRAMYCIN
     Indication: Quadriplegia
     Dosage: 300 MILLIGRAM, BID
     Route: 055
     Dates: start: 20200310
  2. BETHKIS [Suspect]
     Active Substance: TOBRAMYCIN
     Indication: Cerebral palsy
  3. BETHKIS [Suspect]
     Active Substance: TOBRAMYCIN
     Indication: Epilepsy
  4. BETHKIS [Suspect]
     Active Substance: TOBRAMYCIN
     Indication: Partial seizures

REACTIONS (2)
  - Weight increased [Unknown]
  - Product use in unapproved indication [Unknown]

NARRATIVE: CASE EVENT DATE: 20200310
